FAERS Safety Report 7382845-1 (Version None)
Quarter: 2011Q1

REPORT INFORMATION
  Report Type: 
  Country: None (occurrence: None)
  Receive Date: 20110330
  Receipt Date: 20110322
  Transmission Date: 20110831
  Serious: Yes (Disabling, Other)
  Sender: FDA-Public Use
  Company Number: JP-SHIRE-SPV1-2011-00479

PATIENT
  Age: 65 Year
  Sex: Female

DRUGS (19)
  1. ARICEPT [Concomitant]
     Indication: DEMENTIA
     Dosage: UNK
     Route: 048
     Dates: start: 20081224
  2. ZETIA [Concomitant]
     Indication: DYSLIPIDAEMIA
     Dosage: UNK
     Route: 048
     Dates: start: 20100213
  3. ASPIRIN [Concomitant]
     Indication: ANGINA PECTORIS
     Dosage: UNK
     Route: 048
     Dates: start: 20090618
  4. MEXITIL [Concomitant]
     Indication: VENTRICULAR EXTRASYSTOLES
     Dosage: UNK
     Dates: start: 20030306
  5. FOSRENOL [Suspect]
     Indication: HYPERPHOSPHATAEMIA
     Dosage: UNK
     Route: 048
     Dates: start: 20090312, end: 20090318
  6. PREDNISOLONE [Concomitant]
     Indication: SJOGREN'S SYNDROME
     Dosage: UNK
     Route: 048
  7. GASMOTIN [Concomitant]
     Indication: GASTRITIS
     Dosage: UNK UNK, UNKNOWN
     Route: 048
     Dates: start: 20080601
  8. LOCHOL                             /00638501/ [Concomitant]
     Indication: DYSLIPIDAEMIA
     Dosage: UNK
     Route: 048
     Dates: start: 20090910
  9. FORSENID                           /00571901/ [Concomitant]
     Indication: CONSTIPATION
     Dosage: UNK
     Route: 048
     Dates: start: 19991201
  10. LAXOBERON [Concomitant]
     Indication: CONSTIPATION
     Dosage: UNK
     Route: 048
     Dates: start: 20070929
  11. ZYLORIC [Concomitant]
     Indication: HYPERURICAEMIA
     Dosage: UNK
     Route: 048
  12. DIOVAN [Concomitant]
     Dosage: UNK
     Route: 048
  13. RIVOTRIL [Concomitant]
     Indication: PRODUCT USED FOR UNKNOWN INDICATION
     Dosage: UNK
     Route: 048
     Dates: start: 20000822
  14. D-SORBITOL [Concomitant]
     Indication: CONSTIPATION
     Dosage: UNK
     Route: 048
     Dates: start: 20090910
  15. DIOVAN [Concomitant]
     Indication: HYPERTENSION
     Dosage: UNK
     Route: 048
  16. FOSRENOL [Suspect]
     Dosage: UNK
     Route: 048
     Dates: start: 20090416, end: 20101229
  17. MEXITIL [Concomitant]
     Dosage: UNK
  18. FOSRENOL [Suspect]
     Dosage: UNK
     Route: 048
     Dates: start: 20090319, end: 20090415
  19. PROTECADIN [Concomitant]
     Dosage: UNK
     Route: 048
     Dates: start: 20081201

REACTIONS (3)
  - SEPTIC SHOCK [None]
  - LARGE INTESTINE PERFORATION [None]
  - DISSEMINATED INTRAVASCULAR COAGULATION [None]
